FAERS Safety Report 6463141-3 (Version None)
Quarter: 2009Q4

REPORT INFORMATION
  Report Type: 
  Country: None (occurrence: None)
  Receive Date: 20091123
  Receipt Date: 20091109
  Transmission Date: 20100525
  Serious: Yes (Other)
  Sender: FDA-Public Use
  Company Number: 2009AC000376

PATIENT
  Age: 50 Year
  Sex: Female

DRUGS (2)
  1. DIGOXIN [Suspect]
     Dosage: 7.5 MG
  2. LEXOMIL (BROMAZEPAM) [Suspect]

REACTIONS (9)
  - ATRIOVENTRICULAR BLOCK FIRST DEGREE [None]
  - BLOOD PRESSURE DECREASED [None]
  - CONDUCTION DISORDER [None]
  - HYPERKALAEMIA [None]
  - HYPOVOLAEMIA [None]
  - OVERDOSE [None]
  - RENAL FAILURE [None]
  - THERAPEUTIC AGENT TOXICITY [None]
  - VENTRICULAR EXTRASYSTOLES [None]
